FAERS Safety Report 9626328 (Version 5)
Quarter: 2015Q1

REPORT INFORMATION
  Report Type: Spontaneous
  Country: CH (occurrence: CH)
  Receive Date: 20131016
  Receipt Date: 20150306
  Transmission Date: 20150721
  Serious: Yes (Disabling, Other)
  Sender: FDA-Public Use
  Company Number: CH-ABBVIE-13X-151-1066653-00

PATIENT
  Age: 44 Year
  Sex: Female

DRUGS (12)
  1. KLACID [Suspect]
     Active Substance: CLARITHROMYCIN
     Indication: INFLUENZA
     Route: 048
  2. KLACID [Suspect]
     Active Substance: CLARITHROMYCIN
     Indication: SINUSITIS
     Route: 048
  3. KLACID [Suspect]
     Active Substance: CLARITHROMYCIN
     Indication: BRONCHITIS
     Route: 048
     Dates: start: 20130318, end: 20130319
  4. NOVALGIN [Concomitant]
     Active Substance: METAMIZOLE SODIUM
     Indication: PRODUCT USED FOR UNKNOWN INDICATION
  5. SICCORAL [Concomitant]
     Indication: PHARYNGEAL DISORDER
  6. RINOSEDIN [Concomitant]
     Indication: PRODUCT USED FOR UNKNOWN INDICATION
  7. KLACID [Suspect]
     Active Substance: CLARITHROMYCIN
     Indication: INFECTION PROPHYLAXIS
     Route: 048
  8. AMOXICILLIN. [Concomitant]
     Active Substance: AMOXICILLIN
     Indication: BRONCHITIS
     Dates: start: 20130320
  9. KLACID [Suspect]
     Active Substance: CLARITHROMYCIN
     Indication: GENERAL PHYSICAL HEALTH DETERIORATION
     Route: 048
  10. LEMOCIN [Concomitant]
     Indication: OROPHARYNGEAL PAIN
     Dosage: 4MG / 1MG / 2MG
  11. EUTHYROX [Concomitant]
     Active Substance: LEVOTHYROXINE SODIUM
     Indication: HYPOTHYROIDISM
     Route: 048
     Dates: start: 2009
  12. VENTOLIN [Concomitant]
     Active Substance: ALBUTEROL SULFATE
     Indication: PRODUCT USED FOR UNKNOWN INDICATION

REACTIONS (8)
  - Hypoacusis [Not Recovered/Not Resolved]
  - Alopecia [Not Recovered/Not Resolved]
  - Ageusia [Unknown]
  - Quality of life decreased [Not Recovered/Not Resolved]
  - Anosmia [Unknown]
  - Dry throat [Not Recovered/Not Resolved]
  - Glossitis [Not Recovered/Not Resolved]
  - Dry mouth [Not Recovered/Not Resolved]

NARRATIVE: CASE EVENT DATE: 2013
